FAERS Safety Report 12884292 (Version 1)
Quarter: 2016Q4

REPORT INFORMATION
  Report Type: Spontaneous
  Country: US (occurrence: US)
  Receive Date: 20161026
  Receipt Date: 20161026
  Transmission Date: 20170207
  Serious: No
  Sender: FDA-Public Use
  Company Number: US-PFIZER INC-2016496763

PATIENT
  Age: 56 Year
  Sex: Female
  Weight: 77 kg

DRUGS (6)
  1. ADVIL CONGESTION RELIEF [Suspect]
     Active Substance: IBUPROFEN\PHENYLEPHRINE HYDROCHLORIDE
     Indication: NASOPHARYNGITIS
     Dosage: 1 DF, SINGLE
     Route: 048
     Dates: start: 20161024
  2. BENADRYL ALLERGY [Concomitant]
     Active Substance: DIPHENHYDRAMINE HYDROCHLORIDE
     Indication: SNEEZING
     Dosage: TWO EVERY 4 TO 6 HOURS
     Route: 048
     Dates: start: 20161023, end: 20161023
  3. BENADRYL ALLERGY [Concomitant]
     Active Substance: DIPHENHYDRAMINE HYDROCHLORIDE
     Indication: RHINORRHOEA
  4. BENADRYL ALLERGY [Concomitant]
     Active Substance: DIPHENHYDRAMINE HYDROCHLORIDE
     Indication: THROAT IRRITATION
  5. BENADRYL ALLERGY [Concomitant]
     Active Substance: DIPHENHYDRAMINE HYDROCHLORIDE
     Indication: EYE PRURITUS
  6. BENADRYL ALLERGY [Concomitant]
     Active Substance: DIPHENHYDRAMINE HYDROCHLORIDE
     Indication: LACRIMATION INCREASED

REACTIONS (7)
  - Drug ineffective [Unknown]
  - Ear pain [Unknown]
  - Nasopharyngitis [Unknown]
  - Toothache [Unknown]
  - Nasal congestion [Unknown]
  - Condition aggravated [Unknown]
  - Rhinalgia [Unknown]

NARRATIVE: CASE EVENT DATE: 20161024
